FAERS Safety Report 5394288-0 (Version None)
Quarter: 2007Q3

REPORT INFORMATION
  Report Type: 
  Country: None (occurrence: None)
  Receive Date: 20070723
  Receipt Date: 20070522
  Transmission Date: 20080115
  Serious: No
  Sender: FDA-Public Use
  Company Number: A0652424A

PATIENT
  Age: 70 Year
  Sex: Male

DRUGS (9)
  1. AVANDIA [Suspect]
     Dosage: 2MG PER DAY
     Route: 048
     Dates: start: 20070201, end: 20070522
  2. CLONAZEPAM [Concomitant]
  3. ALTACE [Concomitant]
  4. VYTORIN [Concomitant]
  5. UNKNOWN MEDICATION [Concomitant]
  6. SERTRALINE HCL [Concomitant]
  7. ATENOLOL [Concomitant]
  8. ASPIRIN [Concomitant]
  9. VITAMIN [Concomitant]

REACTIONS (1)
  - DYSPNOEA [None]
